FAERS Safety Report 21161308 (Version 1)
Quarter: 2022Q3

REPORT INFORMATION
  Report Type: Spontaneous
  Country: US (occurrence: None)
  Receive Date: 20220802
  Receipt Date: 20220802
  Transmission Date: 20221027
  Serious: Yes (Hospitalization)
  Sender: FDA-Public Use
  Company Number: None

PATIENT
  Sex: Male

DRUGS (4)
  1. FLUOROURACIL [Suspect]
     Active Substance: FLUOROURACIL
  2. IRINOTECAN (CPT-11, Camptosar) [Concomitant]
  3. LEUCOVORIN CALCIUM [Concomitant]
  4. ELOXATIN [Concomitant]
     Active Substance: OXALIPLATIN

REACTIONS (10)
  - Facial paralysis [None]
  - Haemoglobin decreased [None]
  - Impaired gastric emptying [None]
  - Asthenia [None]
  - Arterial haemorrhage [None]
  - Haematoma [None]
  - Culture wound positive [None]
  - Liver abscess [None]
  - Flat affect [None]
  - Postoperative wound infection [None]

NARRATIVE: CASE EVENT DATE: 20220703
